FAERS Safety Report 9362730 (Version 2)
Quarter: 2013Q2

REPORT INFORMATION
  Report Type: Report from Study
  Country: DE (occurrence: DE)
  Receive Date: 20130622
  Receipt Date: 20130622
  Transmission Date: 20140414
  Serious: Yes (Hospitalization)
  Sender: FDA-Public Use
  Company Number: DE-US-EMD SERONO, INC.-7166462

PATIENT
  Sex: Female
  Weight: 73 kg

DRUGS (8)
  1. CILENGITIDE [Suspect]
     Indication: GLIOMA
     Route: 042
     Dates: start: 20120924, end: 20120924
  2. CILENGITIDE [Suspect]
     Route: 042
     Dates: start: 20120927, end: 20120927
  3. CILENGITIDE [Suspect]
     Route: 042
     Dates: start: 20121001, end: 20121001
  4. CILENGITIDE [Suspect]
     Route: 042
     Dates: start: 20121004, end: 20121004
  5. TEMOZOLOMIDE [Suspect]
     Indication: GLIOMA
     Route: 048
     Dates: start: 20120924
  6. TEMOZOLOMIDE [Suspect]
     Dates: start: 20120924
  7. TRIMETHOPRIM SULFAMETHOXAZOLE [Suspect]
     Indication: ANTIFUNGAL PROPHYLAXIS
     Dosage: 2X160MG MO-WE-FRI
     Route: 048
     Dates: start: 201202, end: 20121010
  8. AMITRIPTYLIN [Suspect]
     Indication: ANTIDEPRESSANT THERAPY
     Route: 048
     Dates: start: 201203

REACTIONS (1)
  - Nephrogenic diabetes insipidus [Not Recovered/Not Resolved]
